FAERS Safety Report 7014930-8 (Version None)
Quarter: 2010Q3

REPORT INFORMATION
  Report Type: 
  Country: None (occurrence: None)
  Receive Date: 20100927
  Receipt Date: 20091124
  Transmission Date: 20110219
  Serious: No
  Sender: FDA-Public Use
  Company Number: US-ASTRAZENECA-2009UW03823

PATIENT
  Age: 63 Year
  Sex: Female
  Weight: 55.3 kg

DRUGS (6)
  1. ARIMIDEX [Suspect]
     Indication: BREAST CANCER
     Route: 048
     Dates: start: 20030201, end: 20080201
  2. ACTONEL [Concomitant]
  3. VIOKASE 16 [Concomitant]
  4. XANAX [Concomitant]
  5. FLONASE [Concomitant]
  6. VITAMINS [Concomitant]

REACTIONS (3)
  - HYPOAESTHESIA [None]
  - MEMORY IMPAIRMENT [None]
  - PARAESTHESIA [None]
